FAERS Safety Report 14923435 (Version 1)
Quarter: 2018Q2

REPORT INFORMATION
  Report Type: Spontaneous
  Country: US (occurrence: US)
  Receive Date: 20180520
  Receipt Date: 20180520
  Transmission Date: 20180711
  Serious: Yes (Hospitalization)
  Sender: FDA-Public Use
  Company Number: None

PATIENT
  Age: 36 Year
  Sex: Male

DRUGS (1)
  1. ALLOPURINOL. [Suspect]
     Active Substance: ALLOPURINOL
     Dates: start: 20180421, end: 20180421

REACTIONS (15)
  - Rash [None]
  - Malaise [None]
  - Influenza [None]
  - Vision blurred [None]
  - Oropharyngeal pain [None]
  - Drug ineffective [None]
  - Pruritus [None]
  - Swelling [None]
  - Photophobia [None]
  - Pyrexia [None]
  - Diarrhoea [None]
  - Swelling face [None]
  - Urticaria [None]
  - Toxicity to various agents [None]
  - Rash pruritic [None]

NARRATIVE: CASE EVENT DATE: 20180421
